FAERS Safety Report 5945514-8 (Version None)
Quarter: 2008Q4

REPORT INFORMATION
  Report Type: 
  Country: None (occurrence: None)
  Receive Date: 20081107
  Receipt Date: 20081027
  Transmission Date: 20090506
  Serious: Yes (Other)
  Sender: FDA-Public Use
  Company Number: CN-PFIZER INC-2008090455

PATIENT
  Age: 53 Year
  Sex: Female

DRUGS (2)
  1. VFEND [Suspect]
     Dosage: TEXT:1ST DOSE 200MG Q8H, REMAINING 200MG BID
     Route: 042
     Dates: start: 20080928
  2. VFEND [Suspect]
     Indication: BRONCHOPULMONARY ASPERGILLOSIS
     Route: 048
     Dates: start: 20081003, end: 20081027

REACTIONS (4)
  - APHASIA [None]
  - DYSARTHRIA [None]
  - DYSPHONIA [None]
  - HYPOKALAEMIA [None]
